FAERS Safety Report 15395116 (Version 1)
Quarter: 2018Q3

REPORT INFORMATION
  Report Type: Spontaneous
  Country: US (occurrence: US)
  Receive Date: 20180911
  Receipt Date: 20180911
  Transmission Date: 20181010
  Serious: Yes (Other)
  Sender: FDA-Public Use
  Company Number: None

PATIENT
  Age: 24 Year
  Sex: Female

DRUGS (1)
  1. AMOXICILLIN. [Suspect]
     Active Substance: AMOXICILLIN
     Indication: PHARYNGITIS STREPTOCOCCAL
     Dates: start: 20180908, end: 20180910

REACTIONS (6)
  - Urticaria [None]
  - Pruritus [None]
  - Swelling face [None]
  - Condition aggravated [None]
  - Pharyngeal oedema [None]
  - Therapy cessation [None]

NARRATIVE: CASE EVENT DATE: 20180910
